FAERS Safety Report 5255512-8 (Version None)
Quarter: 2007Q1

REPORT INFORMATION
  Report Type: 
  Country: None (occurrence: None)
  Receive Date: 20070305
  Receipt Date: 20070222
  Transmission Date: 20070707
  Serious: Yes (Other)
  Sender: FDA-Public Use
  Company Number: CA-JNJFOC-20070202908

PATIENT
  Sex: Male
  Weight: 84.5 kg

DRUGS (10)
  1. TMC114 [Suspect]
     Route: 048
  2. TMC114 [Suspect]
     Indication: HIV INFECTION
     Route: 048
  3. NORVIR [Suspect]
     Indication: HIV INFECTION
     Route: 048
  4. VIDEX EC [Concomitant]
     Indication: HIV INFECTION
     Route: 065
  5. ABACAVIR [Concomitant]
     Indication: HIV INFECTION
     Route: 065
  6. VIREAD [Concomitant]
     Indication: HIV INFECTION
     Route: 065
  7. MIRTAZAPINE [Concomitant]
     Route: 065
  8. BUPROPION HCL [Concomitant]
     Route: 065
  9. FENOFIBRATE [Concomitant]
     Route: 065
  10. LOPERAMIDE HCL [Concomitant]

REACTIONS (1)
  - HEPATIC ENZYME INCREASED [None]
